FAERS Safety Report 16931960 (Version 2)
Quarter: 2022Q2

REPORT INFORMATION
  Report Type: Spontaneous
  Country: US (occurrence: US)
  Receive Date: 20191017
  Receipt Date: 20220409
  Transmission Date: 20220720
  Serious: Yes (Hospitalization)
  Sender: FDA-Public Use
  Company Number: US-NOVARTISPH-NVSC2019US001921

PATIENT
  Age: 72 Year
  Sex: Male

DRUGS (4)
  1. TYKERB [Suspect]
     Active Substance: LAPATINIB DITOSYLATE
     Indication: Metastases to rectum
     Dosage: UNK
     Route: 065
     Dates: start: 20190325, end: 20190724
  2. TYKERB [Suspect]
     Active Substance: LAPATINIB DITOSYLATE
     Indication: Metastases to bone
     Dosage: UNK
     Route: 065
     Dates: start: 20190806, end: 20190826
  3. TYKERB [Suspect]
     Active Substance: LAPATINIB DITOSYLATE
     Indication: Metastases to lung
  4. HERCEPTIN [Suspect]
     Active Substance: TRASTUZUMAB
     Indication: Metastases to rectum
     Dosage: UNK
     Route: 065

REACTIONS (8)
  - Pneumonitis [Not Recovered/Not Resolved]
  - Pneumonia [Not Recovered/Not Resolved]
  - Dyspnoea [Not Recovered/Not Resolved]
  - Cough [Not Recovered/Not Resolved]
  - Chills [Not Recovered/Not Resolved]
  - Hypoxia [Not Recovered/Not Resolved]
  - Gait inability [Not Recovered/Not Resolved]
  - Product use in unapproved indication [Unknown]

NARRATIVE: CASE EVENT DATE: 20190724
